FAERS Safety Report 12586343 (Version 2)
Quarter: 2016Q3

REPORT INFORMATION
  Report Type: Report from Study
  Country: GB (occurrence: GB)
  Receive Date: 20160725
  Receipt Date: 20160812
  Transmission Date: 20161109
  Serious: Yes (Other)
  Sender: FDA-Public Use
  Company Number: PHFR2016GB005928

PATIENT
  Age: 41 Year
  Sex: Female

DRUGS (3)
  1. PARACETAMOL [Concomitant]
     Active Substance: ACETAMINOPHEN
     Indication: PRODUCT USED FOR UNKNOWN INDICATION
     Route: 065
  2. GABAPENTIN. [Concomitant]
     Active Substance: GABAPENTIN
     Indication: PRODUCT USED FOR UNKNOWN INDICATION
     Dosage: 600 MG, TID
     Route: 065
  3. GILENYA [Suspect]
     Active Substance: FINGOLIMOD HYDROCHLORIDE
     Indication: MULTIPLE SCLEROSIS
     Dosage: 0.5 MG, QD
     Route: 048
     Dates: start: 20141027

REACTIONS (25)
  - Rectal haemorrhage [Unknown]
  - Ligament rupture [Unknown]
  - Alopecia [Unknown]
  - Urinary incontinence [Unknown]
  - Panic disorder [Unknown]
  - Chest discomfort [Unknown]
  - Muscle twitching [Unknown]
  - Fall [Unknown]
  - White blood cell count decreased [Unknown]
  - Joint swelling [Unknown]
  - Irritable bowel syndrome [Recovering/Resolving]
  - Muscle spasms [Unknown]
  - Alanine aminotransferase increased [Unknown]
  - Peroneal nerve palsy [Unknown]
  - Fatigue [Unknown]
  - Osteoarthritis [Unknown]
  - Dyspnoea [Unknown]
  - Neuralgia [Unknown]
  - Pain in extremity [Unknown]
  - Musculoskeletal stiffness [Unknown]
  - Chest pain [Recovering/Resolving]
  - Arthralgia [Unknown]
  - Hypoaesthesia [Unknown]
  - Lymphocyte count decreased [Unknown]
  - Micturition urgency [Unknown]

NARRATIVE: CASE EVENT DATE: 20150309
